FAERS Safety Report 6113209-6 (Version None)
Quarter: 2009Q1

REPORT INFORMATION
  Report Type: 
  Country: None (occurrence: None)
  Receive Date: 20090312
  Receipt Date: 20090226
  Transmission Date: 20090719
  Serious: Yes (Hospitalization)
  Sender: FDA-Public Use
  Company Number: FR-ELI_LILLY_AND_COMPANY-FR200903000291

PATIENT
  Age: 75 Year
  Sex: Female

DRUGS (2)
  1. FORTEO [Suspect]
     Indication: OSTEOPOROSIS
     Dosage: 20 UG, DAILY (1/D)
     Route: 065
     Dates: start: 20080301
  2. FUROSEMIDE [Concomitant]
     Dosage: UNK, UNKNOWN
     Route: 065
     Dates: end: 20090101

REACTIONS (4)
  - ABSCESS [None]
  - DIVERTICULITIS [None]
  - OEDEMA PERIPHERAL [None]
  - WEIGHT DECREASED [None]
